FAERS Safety Report 8093046-6 (Version None)
Quarter: 2012Q1

REPORT INFORMATION
  Report Type: 
  Country: None (occurrence: None)
  Receive Date: 20120128
  Receipt Date: 20110922
  Transmission Date: 20120608
  Serious: No
  Sender: FDA-Public Use
  Company Number: US-ABBOTT-10P-163-0679605-00

PATIENT
  Sex: Male
  Weight: 104.42 kg

DRUGS (13)
  1. METHOTREXATE [Concomitant]
     Indication: RHEUMATOID ARTHRITIS
     Route: 048
  2. FOLIC ACID [Concomitant]
     Indication: SUPPLEMENTATION THERAPY
  3. HUMIRA [Suspect]
     Indication: RHEUMATOID ARTHRITIS
     Route: 058
     Dates: start: 20050101, end: 20110721
  4. CALCIUM [Concomitant]
     Indication: SUPPLEMENTATION THERAPY
  5. ZOCOR [Concomitant]
     Indication: BLOOD CHOLESTEROL INCREASED
  6. VITAMIN D [Concomitant]
     Indication: VITAMIN SUPPLEMENTATION
  7. ASPIRIN [Concomitant]
     Indication: PRODUCT USED FOR UNKNOWN INDICATION
  8. PREDNISONE TAB [Concomitant]
     Indication: RHEUMATOID ARTHRITIS
     Dosage: UNKNOWN STRENGTH
     Route: 048
  9. FISH OIL [Concomitant]
     Indication: SUPPLEMENTATION THERAPY
  10. ACETAMINOPHEN [Concomitant]
     Indication: PAIN
  11. OMEPRAZOLE [Concomitant]
     Indication: GASTROOESOPHAGEAL REFLUX DISEASE
  12. METOPROLOL TARTRATE [Concomitant]
     Indication: HYPERTENSION
  13. VITAMIN B COMPLEX CAP [Concomitant]
     Indication: VITAMIN SUPPLEMENTATION

REACTIONS (11)
  - FATIGUE [None]
  - FREQUENT BOWEL MOVEMENTS [None]
  - RHEUMATOID FACTOR INCREASED [None]
  - MICTURITION URGENCY [None]
  - PNEUMONIA [None]
  - SINUSITIS [None]
  - VOMITING [None]
  - ABDOMINAL PAIN [None]
  - NAUSEA [None]
  - DIARRHOEA [None]
  - RENAL CYST [None]
